FAERS Safety Report 8528789-0 (Version None)
Quarter: 2012Q3

REPORT INFORMATION
  Report Type: 
  Country: None (occurrence: None)
  Receive Date: 20120723
  Receipt Date: 20120710
  Transmission Date: 20120928
  Serious: Yes (Death, Hospitalization)
  Sender: FDA-Public Use
  Company Number: DE-009507513-2012SP031348

PATIENT

DRUGS (1)
  1. NUVARING [Suspect]
     Indication: CONTRACEPTION
     Dosage: UNK
     Route: 067
     Dates: start: 20120101, end: 20120406

REACTIONS (7)
  - FACIAL PARESIS [None]
  - SENSORY DISTURBANCE [None]
  - HYPOAESTHESIA [None]
  - HYPOTENSION [None]
  - DISORIENTATION [None]
  - PERIPHERAL COLDNESS [None]
  - HYPERHIDROSIS [None]
